FAERS Safety Report 21465962 (Version 2)
Quarter: 2022Q4

REPORT INFORMATION
  Report Type: Spontaneous
  Country: NL (occurrence: NL)
  Receive Date: 20221017
  Receipt Date: 20221207
  Transmission Date: 20230113
  Serious: Yes (Hospitalization)
  Sender: FDA-Public Use
  Company Number: NL-TEVA-2022-NL-2067431

PATIENT
  Age: 23 Year
  Sex: Male

DRUGS (10)
  1. FLUCONAZOLE [Suspect]
     Active Substance: FLUCONAZOLE
     Indication: Antifungal prophylaxis
     Dosage: 400 MILLIGRAM, QD
     Route: 065
  2. FLUCONAZOLE [Suspect]
     Active Substance: FLUCONAZOLE
     Indication: Hepatosplenic candidiasis
     Dosage: UNK
     Route: 065
  3. VANCOMYCIN [Suspect]
     Active Substance: VANCOMYCIN
     Indication: Antibiotic therapy
     Dosage: UNK
     Route: 065
  4. CIPROFLOXACIN [Suspect]
     Active Substance: CIPROFLOXACIN
     Indication: Antibiotic therapy
     Dosage: UNK
     Route: 065
  5. PIPERACILLIN SODIUM\TAZOBACTAM SODIUM [Suspect]
     Active Substance: PIPERACILLIN SODIUM\TAZOBACTAM SODIUM
     Indication: Antibiotic therapy
     Dosage: UNK
     Route: 065
  6. AMPHOTERICIN B [Suspect]
     Active Substance: AMPHOTERICIN B
     Indication: Candida infection
     Dosage: UNK
     Route: 048
  7. MEROPENEM [Suspect]
     Active Substance: MEROPENEM
     Indication: Antibiotic therapy
     Dosage: UNK
     Route: 065
  8. ANIDULAFUNGIN [Suspect]
     Active Substance: ANIDULAFUNGIN
     Indication: Antifungal prophylaxis
     Dosage: 200 MILLIGRAM (LOADING DOSE)
     Route: 042
  9. ANIDULAFUNGIN [Suspect]
     Active Substance: ANIDULAFUNGIN
     Indication: Hepatosplenic candidiasis
     Dosage: 100MILLIGRAM,QD
     Route: 042
  10. ANIDULAFUNGIN [Concomitant]
     Active Substance: ANIDULAFUNGIN
     Indication: Antifungal treatment
     Dosage: UNK
     Route: 065

REACTIONS (3)
  - Immune reconstitution inflammatory syndrome [Recovering/Resolving]
  - Hepatosplenic candidiasis [Recovering/Resolving]
  - Drug ineffective [Unknown]
